FAERS Safety Report 9658909 (Version 1)
Quarter: 2013Q4

REPORT INFORMATION
  Report Type: Report from Study
  Country: CO (occurrence: CO)
  Receive Date: 20131030
  Receipt Date: 20131030
  Transmission Date: 20140711
  Serious: Yes (Death)
  Sender: FDA-Public Use
  Company Number: PHHY2013CO122274

PATIENT
  Age: 67 Year
  Sex: 0

DRUGS (1)
  1. SANDOSTATIN LAR [Suspect]
     Dosage: UNK UKN, UNK

REACTIONS (1)
  - Death [Fatal]
